FAERS Safety Report 8517888-5 (Version None)
Quarter: 2012Q3

REPORT INFORMATION
  Report Type: 
  Country: None (occurrence: None)
  Receive Date: 20120718
  Receipt Date: 20110708
  Transmission Date: 20120928
  Serious: No
  Sender: FDA-Public Use
  Company Number: US-BRISTOL-MYERS SQUIBB COMPANY-15871262

PATIENT
  Age: 82 Year
  Sex: Female
  Weight: 66 kg

DRUGS (1)
  1. COUMADIN [Suspect]
     Dosage: 1DF:5MG ONCE DAILY MON-FRIDAY,2.5MG SAT-SUN DOSE INCREASED TO 5MG EVERY DAY THEN TO 5MG AND 7.5 MG

REACTIONS (5)
  - SKIN DISCOLOURATION [None]
  - INTERNATIONAL NORMALISED RATIO ABNORMAL [None]
  - CONTUSION [None]
  - BREAST SWELLING [None]
  - OEDEMA PERIPHERAL [None]
